FAERS Safety Report 12075106 (Version 2)
Quarter: 2016Q1

REPORT INFORMATION
  Report Type: Spontaneous
  Country: NO (occurrence: NO)
  Receive Date: 20160212
  Receipt Date: 20160317
  Transmission Date: 20160526
  Serious: Yes (Death, Other)
  Sender: FDA-Public Use
  Company Number: NO-ABBVIE-16P-122-1558836-00

PATIENT
  Sex: Male

DRUGS (2)
  1. MAREVAN [Concomitant]
     Active Substance: WARFARIN SODIUM
     Indication: CARDIAC DISORDER
  2. DUODOPA [Suspect]
     Active Substance: CARBIDOPA\LEVODOPA
     Indication: PARKINSON^S DISEASE
     Dosage: DURATION:MANY YEARS
     Route: 050

REACTIONS (4)
  - Sepsis [Fatal]
  - Urinary tract infection [Unknown]
  - Pneumonia [Fatal]
  - Urinary tract infection [Fatal]
